FAERS Safety Report 18493061 (Version 1)
Quarter: 2020Q4

REPORT INFORMATION
  Report Type: Report from Study
  Country: JP (occurrence: JP)
  Receive Date: 20201111
  Receipt Date: 20201111
  Transmission Date: 20210114
  Serious: Yes (Hospitalization, Other)
  Sender: FDA-Public Use
  Company Number: JP-JNJFOC-A-CH2016-143981

PATIENT
  Age: 38 Year
  Sex: Female
  Weight: 49.6 kg

DRUGS (34)
  1. WARFARIN POTASSIUM [Suspect]
     Active Substance: WARFARIN POTASSIUM
     Dosage: 2 MG, QD
     Route: 048
     Dates: start: 20160719, end: 20161215
  2. EPOETIN BETA RECOMBINANT [Concomitant]
     Indication: NEPHROGENIC ANAEMIA
     Dosage: UNK
     Dates: end: 20190117
  3. ALLOPURINOL. [Concomitant]
     Active Substance: ALLOPURINOL
     Indication: PRODUCT USED FOR UNKNOWN INDICATION
  4. UPTRAVI [Suspect]
     Active Substance: SELEXIPAG
     Dosage: 0.4 MG, BID
     Route: 048
     Dates: start: 20190117, end: 20190220
  5. UPTRAVI [Suspect]
     Active Substance: SELEXIPAG
     Route: 048
     Dates: start: 20191017
  6. FERROMIA [Concomitant]
     Active Substance: SODIUM FERROUS CITRATE
     Indication: PRODUCT USED FOR UNKNOWN INDICATION
  7. PREDNISOLONE. [Concomitant]
     Active Substance: PREDNISOLONE
     Indication: PRODUCT USED FOR UNKNOWN INDICATION
  8. UPTRAVI [Suspect]
     Active Substance: SELEXIPAG
     Indication: PULMONARY ARTERIAL HYPERTENSION
     Dosage: 0.8 MG, BID
     Route: 048
     Dates: start: 20190328, end: 20190515
  9. PARIET [Concomitant]
     Active Substance: RABEPRAZOLE SODIUM
     Indication: PRODUCT USED FOR UNKNOWN INDICATION
  10. CLARITHROMYCIN. [Concomitant]
     Active Substance: CLARITHROMYCIN
     Indication: PRODUCT USED FOR UNKNOWN INDICATION
  11. ACETAMINOPHEN. [Concomitant]
     Active Substance: ACETAMINOPHEN
     Indication: PRODUCT USED FOR UNKNOWN INDICATION
  12. ROZEREM [Concomitant]
     Active Substance: RAMELTEON
  13. FERROMIA [Concomitant]
     Active Substance: SODIUM FERROUS CITRATE
     Indication: NEPHROGENIC ANAEMIA
     Dosage: 50 MG, QD
  14. UPTRAVI [Suspect]
     Active Substance: SELEXIPAG
     Route: 048
     Dates: start: 20190919, end: 20191016
  15. LOXONIN [Suspect]
     Active Substance: LOXOPROFEN SODIUM
     Indication: HEADACHE
     Dosage: UNK, PRN
     Route: 048
     Dates: start: 20151008, end: 20160729
  16. SILDENAFIL CITRATE. [Concomitant]
     Active Substance: SILDENAFIL CITRATE
     Indication: PRODUCT USED FOR UNKNOWN INDICATION
  17. AZATHIOPRINE. [Concomitant]
     Active Substance: AZATHIOPRINE
     Indication: PRODUCT USED FOR UNKNOWN INDICATION
  18. UPTRAVI [Suspect]
     Active Substance: SELEXIPAG
     Dosage: 0.6 MG, BID
     Route: 048
     Dates: start: 20190221, end: 20190327
  19. WARFARIN POTASSIUM [Suspect]
     Active Substance: WARFARIN POTASSIUM
     Indication: PULMONARY ARTERIAL HYPERTENSION
     Dosage: 3 MG, QD
     Route: 048
     Dates: start: 20141104, end: 20160713
  20. BERASUS [Suspect]
     Active Substance: BERAPROST SODIUM
     Indication: PULMONARY ARTERIAL HYPERTENSION
     Dosage: 60 MCG, BID
     Route: 048
     Dates: start: 20140909
  21. AZOSEMIDE [Concomitant]
     Active Substance: AZOSEMIDE
     Indication: PRODUCT USED FOR UNKNOWN INDICATION
  22. OXYGEN. [Concomitant]
     Active Substance: OXYGEN
     Indication: PRODUCT USED FOR UNKNOWN INDICATION
  23. UPTRAVI [Suspect]
     Active Substance: SELEXIPAG
     Dosage: 1.0 MG, BID
     Route: 048
     Dates: start: 20190516, end: 20190619
  24. UPTRAVI [Suspect]
     Active Substance: SELEXIPAG
     Dosage: 1.2 MG, BID
     Route: 048
     Dates: start: 20190620, end: 20190717
  25. UPTRAVI [Suspect]
     Active Substance: SELEXIPAG
     Route: 048
     Dates: start: 20190822, end: 20190918
  26. BERASUS [Suspect]
     Active Substance: BERAPROST SODIUM
     Dosage: 60-120 MCG, QD
     Route: 048
     Dates: end: 20181220
  27. ZOLPIDEM [Concomitant]
     Active Substance: ZOLPIDEM TARTRATE
     Indication: PRODUCT USED FOR UNKNOWN INDICATION
  28. OPSUMIT [Suspect]
     Active Substance: MACITENTAN
     Indication: PULMONARY ARTERIAL HYPERTENSION
     Dosage: 10 MG, QD
     Route: 048
     Dates: start: 20160603
  29. CANDESARTAN. [Suspect]
     Active Substance: CANDESARTAN
     Indication: PULMONARY ARTERIAL HYPERTENSION
     Dosage: 8 MG, QD
     Route: 048
     Dates: start: 20181120, end: 20181220
  30. TANKARU [Concomitant]
  31. DIART [Concomitant]
     Active Substance: AZOSEMIDE
     Dosage: 30 MG, QD
  32. UPTRAVI [Suspect]
     Active Substance: SELEXIPAG
     Dosage: 0.2 MG, BID
     Route: 048
     Dates: start: 20181220, end: 20190116
  33. UPTRAVI [Suspect]
     Active Substance: SELEXIPAG
     Route: 048
     Dates: start: 20190718, end: 20190821
  34. EPOETIN BETA RECOMBINANT [Concomitant]
     Dosage: UNK
     Dates: start: 20190221

REACTIONS (33)
  - Purpura [Recovered/Resolved]
  - Herpes zoster [Recovering/Resolving]
  - Ovarian haemorrhage [Recovering/Resolving]
  - Acute kidney injury [Recovered/Resolved]
  - Haemorrhage [Recovering/Resolving]
  - Headache [Recovering/Resolving]
  - Nausea [Recovered/Resolved]
  - Nasopharyngitis [Recovered/Resolved]
  - Pain in extremity [Recovering/Resolving]
  - Dyspnoea [Recovered/Resolved]
  - Anaemia [Recovering/Resolving]
  - Haemoglobin decreased [Recovering/Resolving]
  - Intra-abdominal haemorrhage [Recovering/Resolving]
  - Pneumonia [Recovering/Resolving]
  - Ligament sprain [Recovered/Resolved]
  - Fall [Recovered/Resolved]
  - Cardiac failure [Recovered/Resolved]
  - Pulmonary hypertension [Recovered/Resolved]
  - Pleural effusion [Recovered/Resolved]
  - Haematocrit decreased [Recovering/Resolving]
  - Depression [Recovering/Resolving]
  - Abdominal pain [Recovering/Resolving]
  - Cervical dysplasia [Not Recovered/Not Resolved]
  - Cough [Recovered/Resolved]
  - Pulmonary arterial pressure increased [Recovered/Resolved]
  - Red blood cell count decreased [Recovering/Resolving]
  - Upper respiratory tract inflammation [Recovered/Resolved]
  - Productive cough [Recovered/Resolved]
  - Diffuse alopecia [Recovering/Resolving]
  - Hypozincaemia [Recovering/Resolving]
  - Transfusion [Unknown]
  - Menorrhagia [Recovering/Resolving]
  - Hypotension [Recovered/Resolved]

NARRATIVE: CASE EVENT DATE: 20160711
